FAERS Safety Report 24422690 (Version 2)
Quarter: 2024Q4

REPORT INFORMATION
  Report Type: Spontaneous
  Country: IT (occurrence: IT)
  Receive Date: 20241010
  Receipt Date: 20241028
  Transmission Date: 20250115
  Serious: Yes (Life-Threatening, Hospitalization, Other)
  Sender: BRACCO
  Company Number: IT-BRACCO-2024IT06221

PATIENT
  Age: 70 Year
  Sex: Female

DRUGS (3)
  1. SULFUR HEXAFLUORIDE [Suspect]
     Active Substance: SULFUR HEXAFLUORIDE
     Indication: Ultrasound kidney
     Dosage: 2.4 ML, SINGLE
     Route: 042
     Dates: start: 20240930, end: 20240930
  2. SULFUR HEXAFLUORIDE [Suspect]
     Active Substance: SULFUR HEXAFLUORIDE
     Indication: Ultrasound kidney
     Dosage: 2.4 ML, SINGLE
     Route: 042
     Dates: start: 20240930, end: 20240930
  3. SULFUR HEXAFLUORIDE [Suspect]
     Active Substance: SULFUR HEXAFLUORIDE
     Indication: Ultrasound kidney
     Dosage: 2.4 ML, SINGLE
     Route: 042
     Dates: start: 20240930, end: 20240930

REACTIONS (1)
  - Anaphylactic reaction [Recovered/Resolved]

NARRATIVE: CASE EVENT DATE: 20240930
